FAERS Safety Report 16242106 (Version 2)
Quarter: 2019Q2

REPORT INFORMATION
  Report Type: Spontaneous
  Country: US (occurrence: US)
  Receive Date: 20190426
  Receipt Date: 20190507
  Transmission Date: 20190711
  Serious: Yes (Hospitalization, Other)
  Sender: FDA-Public Use
  Company Number: US-UNITED THERAPEUTICS-UNT-2019-007192

PATIENT
  Age: 50 Year
  Sex: Female

DRUGS (4)
  1. REMODULIN [Suspect]
     Active Substance: TREPROSTINIL
     Indication: PULMONARY ARTERIAL HYPERTENSION
     Dosage: 0.0361 ?G/KG, CONTINUING
     Route: 058
     Dates: start: 20180902
  2. REMODULIN [Suspect]
     Active Substance: TREPROSTINIL
     Dosage: UNK, CONTINUING
     Route: 058
     Dates: start: 20190427
  3. REMODULIN [Suspect]
     Active Substance: TREPROSTINIL
     Dosage: 0.0381 ?G/KG, CONTINUING
     Route: 058
     Dates: start: 20180903
  4. ALCOHOL. [Suspect]
     Active Substance: ALCOHOL
     Indication: PRODUCT USED FOR UNKNOWN INDICATION
     Dosage: UNK
     Route: 065

REACTIONS (4)
  - Mental disorder [Unknown]
  - Suicide attempt [Unknown]
  - Alcohol withdrawal syndrome [Unknown]
  - Skin laceration [Unknown]

NARRATIVE: CASE EVENT DATE: 20190419
